FAERS Safety Report 10091932 (Version 1)
Quarter: 2014Q2

REPORT INFORMATION
  Report Type: Spontaneous
  Country: US (occurrence: US)
  Receive Date: 20140421
  Receipt Date: 20140421
  Transmission Date: 20141212
  Serious: No
  Sender: FDA-Public Use
  Company Number: US-GILEAD-2013-0070118

PATIENT
  Age: 47 Year
  Sex: Male

DRUGS (1)
  1. LETAIRIS [Suspect]
     Indication: PORTAL HYPERTENSION
     Dosage: 10 MG, QD
     Dates: start: 20120409

REACTIONS (1)
  - Medication error [Recovered/Resolved]
